FAERS Safety Report 22242671 (Version 2)
Quarter: 2023Q2

REPORT INFORMATION
  Report Type: Spontaneous
  Country: US (occurrence: US)
  Receive Date: 20230424
  Receipt Date: 20230509
  Transmission Date: 20230722
  Serious: Yes (Hospitalization, Other)
  Sender: FDA-Public Use
  Company Number: US-Covis Pharma GmbH-2023COV00952

PATIENT
  Age: 32 Year
  Sex: Female

DRUGS (3)
  1. MAKENA [Suspect]
     Active Substance: HYDROXYPROGESTERONE CAPROATE
     Indication: Premature delivery
     Route: 030
     Dates: start: 20200217, end: 20200611
  2. PROMETRIUM [Concomitant]
     Active Substance: PROGESTERONE
     Indication: Product used for unknown indication
     Dates: start: 20191125, end: 20200120
  3. IRON [Concomitant]
     Active Substance: IRON
     Indication: Anaemia
     Dates: start: 20200507, end: 20200612

REACTIONS (3)
  - Preterm premature rupture of membranes [Recovered/Resolved]
  - Amniotic cavity infection [Recovered/Resolved]
  - Premature delivery [Recovered/Resolved]

NARRATIVE: CASE EVENT DATE: 20200611
